FAERS Safety Report 14582830 (Version 1)
Quarter: 2018Q1

REPORT INFORMATION
  Report Type: Spontaneous
  Country: US (occurrence: US)
  Receive Date: 20180228
  Receipt Date: 20180228
  Transmission Date: 20180509
  Serious: No
  Sender: FDA-Public Use
  Company Number: US-BAUSCH-BL-2017-031051

PATIENT
  Age: 71 Year
  Sex: Female

DRUGS (2)
  1. APRISO [Suspect]
     Active Substance: MESALAMINE
     Indication: DIARRHOEA
     Route: 048
     Dates: start: 201710
  2. UCERIS [Suspect]
     Active Substance: BUDESONIDE
     Indication: DIARRHOEA
     Route: 048
     Dates: start: 20171104

REACTIONS (5)
  - Burning sensation [Not Recovered/Not Resolved]
  - Erythema [Not Recovered/Not Resolved]
  - Off label use [Not Recovered/Not Resolved]
  - Drug effective for unapproved indication [Unknown]
  - Gastric dilatation [Recovered/Resolved]

NARRATIVE: CASE EVENT DATE: 201710
